FAERS Safety Report 11741604 (Version 1)
Quarter: 2015Q4

REPORT INFORMATION
  Report Type: Spontaneous
  Country: JP (occurrence: JP)
  Receive Date: 20151116
  Receipt Date: 20151116
  Transmission Date: 20160304
  Serious: Yes (Death)
  Sender: FDA-Public Use
  Company Number: JP-ROCHE-1660311

PATIENT
  Age: 84 Year
  Sex: Female
  Weight: 47 kg

DRUGS (11)
  1. TOKI-SHAKUYAKU-SAN [Concomitant]
     Dosage: 2 DOSAGE FORM, IN THE MORNING AND EVENING
     Route: 048
  2. MEMARY [Concomitant]
     Active Substance: MEMANTINE HYDROCHLORIDE
     Dosage: 2 TABLETS, ONCE IN THE MORNING
     Route: 048
  3. DONEPEZIL HYDROCHLORIDE. [Concomitant]
     Active Substance: DONEPEZIL HYDROCHLORIDE
     Dosage: 0.75 TABLET, ONCE IN THE MORNING
     Route: 048
  4. EDARAVONE [Concomitant]
     Active Substance: EDARAVONE
     Indication: CEREBRAL INFARCTION
     Route: 041
     Dates: start: 20151103, end: 20151103
  5. SODIUM VALPROATE [Concomitant]
     Active Substance: VALPROATE SODIUM
     Dosage: 40%
     Route: 048
  6. GRTPA [Suspect]
     Active Substance: ALTEPLASE
     Indication: CEREBRAL INFARCTION
     Route: 042
     Dates: start: 20151103, end: 20151103
  7. ZOLPIDEM TARTRATE. [Concomitant]
     Active Substance: ZOLPIDEM TARTRATE
     Dosage: 1 TABLET BEFORE SLEEPING
     Route: 048
  8. DIOVAN [Concomitant]
     Active Substance: VALSARTAN
     Dosage: 1.5 TABLET, ONCE IN MORNING
     Route: 048
  9. ITOROL [Concomitant]
     Active Substance: ISOSORBIDE MONONITRATE
     Dosage: ONE TABLET, ONCE IN THE MORNING
     Route: 048
  10. BAYASPIRIN [Concomitant]
     Active Substance: ASPIRIN
     Dosage: 1 TABLET, ONCE IN THE MORNING
     Route: 048
  11. ATORVASTATIN [Concomitant]
     Active Substance: ATORVASTATIN
     Dosage: 1 TABLET, ONCE IN THE MORNING
     Route: 048

REACTIONS (1)
  - Aortic aneurysm rupture [Fatal]

NARRATIVE: CASE EVENT DATE: 20151103
